APPROVED DRUG PRODUCT: KETOROLAC TROMETHAMINE
Active Ingredient: KETOROLAC TROMETHAMINE
Strength: 0.45%
Dosage Form/Route: SOLUTION/DROPS;OPHTHALMIC
Application: A203376 | Product #001
Applicant: EPIC PHARMA LLC
Approved: Feb 10, 2014 | RLD: No | RS: No | Type: DISCN